FAERS Safety Report 7602017-2 (Version None)
Quarter: 2011Q2

REPORT INFORMATION
  Report Type: 
  Country: None (occurrence: None)
  Receive Date: 20110630
  Receipt Date: 20101020
  Transmission Date: 20111010
  Serious: Yes (Other)
  Sender: FDA-Public Use
  Company Number: 2010P1002130

PATIENT
  Age: 1 Year
  Sex: Female
  Weight: 11.1948 kg

DRUGS (1)
  1. BUPHENYL [Suspect]
     Dosage: 6.9 G

REACTIONS (1)
  - AMMONIA INCREASED [None]
